FAERS Safety Report 4590357-3 (Version None)
Quarter: 2005Q1

REPORT INFORMATION
  Report Type: 
  Country: None (occurrence: None)
  Receive Date: 20050217
  Receipt Date: 20050204
  Transmission Date: 20050727
  Serious: Yes (Other)
  Sender: FDA-Public Use
  Company Number: MC200500135

PATIENT
  Age: 70 Year
  Sex: Male

DRUGS (5)
  1. ANGIOMAX [Suspect]
     Dosage: SEE IMAGE
     Route: 042
     Dates: start: 20050131, end: 20050131
  2. ANGIOMAX [Suspect]
     Dosage: SEE IMAGE
     Route: 042
     Dates: start: 20050131, end: 20050131
  3. ACETYLSALICYLIC ACID SRT [Concomitant]
  4. PLAVIX [Concomitant]
  5. ALL OTHER THERAPEUTIC PRODUCTS [Concomitant]

REACTIONS (1)
  - THROMBOCYTOPENIA [None]
